FAERS Safety Report 8227362-1 (Version None)
Quarter: 2012Q1

REPORT INFORMATION
  Report Type: 
  Country: None (occurrence: None)
  Receive Date: 20120322
  Receipt Date: 20120315
  Transmission Date: 20120608
  Serious: Yes (Hospitalization)
  Sender: FDA-Public Use
  Company Number: US-BAYER-2011-029638

PATIENT
  Age: 39 Year
  Sex: Female
  Weight: 53.061 kg

DRUGS (23)
  1. AMOXICILLIN [Concomitant]
     Dosage: 875 MG, UNK
     Dates: start: 20070420
  2. METROGEL-VAGINAL [METRONIDAZOLE] [Concomitant]
     Dosage: UNK
     Dates: start: 20070315
  3. HYDROCODONE BITARTRATE AND ACETAMINOPHEN [Concomitant]
     Dosage: 5/325 MG
     Dates: start: 20070525, end: 20070605
  4. EXCEDRIN [CAFFEINE,PARACETAMOL] [Concomitant]
  5. YAZ [Suspect]
     Indication: MENSTRUATION IRREGULAR
     Dosage: UNK
     Dates: start: 20060627, end: 20070808
  6. YAZ [Suspect]
     Indication: PREMENSTRUAL SYNDROME
  7. YASMIN [Suspect]
     Indication: MENSTRUATION IRREGULAR
     Dosage: UNK
     Dates: start: 20050505, end: 20050912
  8. YASMIN [Suspect]
     Indication: PREMENSTRUAL SYNDROME
  9. IBUPROFEN (ADVIL) [Concomitant]
  10. IMITREX [Concomitant]
     Dosage: UNK
     Dates: start: 20001014, end: 20071209
  11. ZITHROMAX [Concomitant]
     Dosage: UNK
     Dates: start: 20070515
  12. RELPAX [Concomitant]
     Dosage: UNK
     Dates: start: 20050426, end: 20070822
  13. CALCIUM W/VITAMIN D NOS [Concomitant]
     Dosage: UNK
     Dates: start: 20060606, end: 20090119
  14. METRONIDAZOLE [Concomitant]
     Dosage: 0.75 %, UNK
  15. NORCO [Concomitant]
     Dosage: PRN
  16. AZITHROMYCIN [Concomitant]
     Dosage: 250 MG, UNK
     Dates: start: 20070515
  17. OXYCODONE HCL AND ACETAMINOPHEN [Concomitant]
     Dosage: 5/325MG
     Dates: start: 20070523
  18. OXYCODONE HYDROCHLORIDE EXTENDED RELEASE [Concomitant]
     Dosage: 10 MG, UNK
     Dates: start: 20070524
  19. MULTI-VITAMINS [Concomitant]
     Dosage: UNK
     Dates: start: 20050501
  20. HYDROCODONE BITARTRATE/HOMATROPINE METHYBROMIDE [Concomitant]
     Dosage: 5/1.5
     Dates: start: 20070424
  21. FLAGYL [Concomitant]
     Dosage: UNK
     Dates: start: 20040824, end: 20070828
  22. COENZYME Q10 [Concomitant]
     Dosage: UNK
     Dates: start: 20060606, end: 20090119
  23. VITAMIN B12 NOS [Concomitant]
     Dosage: UNK
     Dates: start: 20070119

REACTIONS (7)
  - PAIN [None]
  - DEEP VEIN THROMBOSIS [None]
  - INJURY [None]
  - OEDEMA PERIPHERAL [None]
  - ANXIETY [None]
  - EMOTIONAL DISTRESS [None]
  - GENERAL PHYSICAL HEALTH DETERIORATION [None]
